FAERS Safety Report 23073612 (Version 1)
Quarter: 2023Q4

REPORT INFORMATION
  Report Type: Other
  Country: SA (occurrence: None)
  Receive Date: 20231017
  Receipt Date: 20231017
  Transmission Date: 20240110
  Serious: Yes (Other)
  Sender: FDA-Public Use
  Company Number: SA-ROCHE-3438847

PATIENT

DRUGS (11)
  1. AVASTIN [Suspect]
     Active Substance: BEVACIZUMAB
     Indication: Breast cancer
     Dosage: 25 MG/ML
     Route: 065
  2. AVASTIN [Suspect]
     Active Substance: BEVACIZUMAB
     Indication: Ovarian cancer
  3. AVASTIN [Suspect]
     Active Substance: BEVACIZUMAB
     Indication: Glioblastoma
  4. AVASTIN [Suspect]
     Active Substance: BEVACIZUMAB
     Indication: Colorectal cancer
  5. PERJETA [Suspect]
     Active Substance: PERTUZUMAB
     Indication: Breast cancer
     Dosage: 420 MG/14 ML
     Route: 065
  6. HERZUMA [Suspect]
     Active Substance: TRASTUZUMAB-PKRB
     Indication: Breast cancer
     Route: 042
  7. HERZUMA [Suspect]
     Active Substance: TRASTUZUMAB-PKRB
     Indication: Gastric cancer
  8. HERZUMA [Suspect]
     Active Substance: TRASTUZUMAB-PKRB
     Indication: Endometrial cancer
  9. DOCETAXEL [Concomitant]
     Active Substance: DOCETAXEL
  10. PACLITAXEL [Concomitant]
     Active Substance: PACLITAXEL
  11. DOXORUBICIN [Concomitant]
     Active Substance: DOXORUBICIN

REACTIONS (6)
  - Cardiac failure [Unknown]
  - Myocardial ischaemia [Unknown]
  - Hypertension [Unknown]
  - Embolism [Unknown]
  - Arrhythmia [Unknown]
  - Haemorrhage [Unknown]
